FAERS Safety Report 12689283 (Version 1)
Quarter: 2016Q3

REPORT INFORMATION
  Report Type: Spontaneous
  Country: CA (occurrence: CA)
  Receive Date: 20160826
  Receipt Date: 20160826
  Transmission Date: 20161109
  Serious: Yes (Hospitalization)
  Sender: FDA-Public Use
  Company Number: CA-JNJFOC-20160820279

PATIENT
  Age: 65 Year
  Sex: Male

DRUGS (10)
  1. CIPRALEX [Concomitant]
     Active Substance: ESCITALOPRAM OXALATE
     Route: 065
  2. INVOKANA [Suspect]
     Active Substance: CANAGLIFLOZIN
     Indication: TYPE 2 DIABETES MELLITUS
     Route: 065
     Dates: start: 201606, end: 20160722
  3. BISOPROLOL [Concomitant]
     Active Substance: BISOPROLOL
     Route: 065
  4. LIPITOR [Concomitant]
     Active Substance: ATORVASTATIN CALCIUM
     Route: 065
  5. INVOKANA [Suspect]
     Active Substance: CANAGLIFLOZIN
     Indication: TYPE 2 DIABETES MELLITUS
     Route: 065
  6. METFORMIN [Concomitant]
     Active Substance: METFORMIN HYDROCHLORIDE
     Route: 065
  7. INSULIN [Concomitant]
     Active Substance: INSULIN NOS
     Route: 065
  8. XARELTO [Concomitant]
     Active Substance: RIVAROXABAN
     Route: 065
  9. ASA [Concomitant]
     Active Substance: ASPIRIN
     Route: 065
  10. RAMIPRIL. [Concomitant]
     Active Substance: RAMIPRIL
     Route: 065

REACTIONS (7)
  - Thrombosis [Unknown]
  - Renal failure [Unknown]
  - Diabetic ketoacidosis [Unknown]
  - Diarrhoea [Unknown]
  - Hallucination [Unknown]
  - Myocardial infarction [Unknown]
  - Pollakiuria [Unknown]

NARRATIVE: CASE EVENT DATE: 20160722
